FAERS Safety Report 6755025-8 (Version None)
Quarter: 2010Q2

REPORT INFORMATION
  Report Type: 
  Country: None (occurrence: None)
  Receive Date: 20100604
  Receipt Date: 20100526
  Transmission Date: 20101027
  Serious: Yes (Other)
  Sender: FDA-Public Use
  Company Number: US-B.I. PHARMACEUTICALS,INC./RIDGEFIELD-2010-BP-04992BP

PATIENT
  Age: 50 Year
  Sex: Female
  Weight: 119.6 kg

DRUGS (14)
  1. DULCOLAX [Suspect]
     Indication: COLONOSCOPY
     Dosage: 15 MG
     Route: 048
     Dates: start: 20100411, end: 20100412
  2. HALFLYTELY [Suspect]
     Indication: COLONOSCOPY
     Route: 048
     Dates: start: 20100401
  3. CALTRATE [Concomitant]
  4. ACEON [Concomitant]
     Dosage: 8 MG
     Dates: start: 20100326
  5. TOPAMAX [Concomitant]
     Dates: start: 20100326
  6. FEXOFENADINE [Concomitant]
     Dosage: 180 MG
     Dates: start: 20100326
  7. PREMARIN [Concomitant]
     Dosage: 0.3 MG
     Dates: start: 20100326
  8. NEXIUM [Concomitant]
     Dates: start: 20100326
  9. BONIVA [Concomitant]
     Dates: start: 20100326
  10. NASACORT [Concomitant]
     Dates: start: 20100326
  11. HCTZ [Concomitant]
     Dates: start: 20100326, end: 20100416
  12. CALCIUM WITH D [Concomitant]
     Dates: start: 20100326
  13. MULTI-VITAMIN [Concomitant]
     Dates: start: 20100326
  14. ALLERGY SHOTS [Concomitant]
     Dates: start: 20100326

REACTIONS (7)
  - ABDOMINAL PAIN [None]
  - ASTHENIA [None]
  - BODY TEMPERATURE INCREASED [None]
  - COLITIS ISCHAEMIC [None]
  - FREQUENT BOWEL MOVEMENTS [None]
  - MUSCLE SPASMS [None]
  - NAUSEA [None]
